FAERS Safety Report 6293253-9 (Version None)
Quarter: 2009Q3

REPORT INFORMATION
  Report Type: 
  Country: None (occurrence: None)
  Receive Date: 20090731
  Receipt Date: 20090721
  Transmission Date: 20100115
  Serious: Yes (Hospitalization)
  Sender: FDA-Public Use
  Company Number: US-JNJFOC-20090708173

PATIENT
  Sex: Male
  Weight: 69.4 kg

DRUGS (8)
  1. REMICADE [Suspect]
     Indication: CROHN'S DISEASE
     Dosage: 5.0 MG/KG ON 29-AUG-2002 AND 22-AUG-2003
     Route: 042
  2. IMMODIIUM [Suspect]
  3. IMMODIIUM [Suspect]
     Indication: CROHN'S DISEASE
  4. NEXIUM [Suspect]
     Indication: CROHN'S DISEASE
  5. PEDIALYTE [Suspect]
     Indication: CROHN'S DISEASE
  6. QUESTRAN [Suspect]
     Indication: CROHN'S DISEASE
  7. XIFAXAN [Suspect]
     Indication: CROHN'S DISEASE
  8. CERTOLIZUMAB [Suspect]
     Indication: DRUG USE FOR UNKNOWN INDICATION

REACTIONS (2)
  - DEHYDRATION [None]
  - RENAL FAILURE ACUTE [None]
